FAERS Safety Report 6452008-2 (Version None)
Quarter: 2009Q4

REPORT INFORMATION
  Report Type: 
  Country: None (occurrence: None)
  Receive Date: 20091123
  Receipt Date: 20091111
  Transmission Date: 20100525
  Serious: Yes (Other)
  Sender: FDA-Public Use
  Company Number: PHEH2009US09589

PATIENT
  Sex: Male
  Weight: 3.5 kg

DRUGS (5)
  1. NEORAL [Suspect]
     Indication: HEART TRANSPLANT
     Dosage: 0.5 ML EVERY 8 HOURS
     Dates: start: 20090731
  2. NEORAL [Suspect]
     Dosage: 5 MG EVERY 8 HOURS
  3. CELLCEPT [Concomitant]
  4. ORTHOCLONE OKT3 [Concomitant]
  5. STEROIDS NOS [Concomitant]

REACTIONS (2)
  - ACCIDENTAL OVERDOSE [None]
  - DRUG DISPENSING ERROR [None]
